FAERS Safety Report 9412612 (Version 1)
Quarter: 2013Q2

REPORT INFORMATION
  Report Type: Spontaneous
  Country: KR (occurrence: KR)
  Receive Date: 20130624
  Receipt Date: 20130624
  Transmission Date: 20140414
  Serious: Yes (Other)
  Sender: FDA-Public Use
  Company Number: FK201202961

PATIENT
  Age: 48 Year
  Sex: Female

DRUGS (4)
  1. FLUDARABINE [Suspect]
     Indication: PROPHYLAXIS
  2. ALEMTUZUMAB [Suspect]
     Indication: PROPHYLAXIS
     Dosage: 75 MG TOTAL
  3. BUSULFAN [Suspect]
     Indication: PROPHYLAXIS
  4. TRIMETHOPRIM SULFAMETHOXAZOLE (BACTRIM/00086101/) [Concomitant]

REACTIONS (1)
  - Pneumocystis jirovecii pneumonia [None]
